FAERS Safety Report 19965397 (Version 2)
Quarter: 2021Q4

REPORT INFORMATION
  Report Type: Spontaneous
  Country: JP (occurrence: JP)
  Receive Date: 20211018
  Receipt Date: 20211026
  Transmission Date: 20220303
  Serious: Yes (Other)
  Sender: FDA-Public Use
  Company Number: JP-EAGLE PHARMACEUTICALS, INC.-JP-2021EAG000218

PATIENT
  Age: 61 Year
  Sex: Male

DRUGS (12)
  1. BENDAMUSTINE HYDROCHLORIDE [Suspect]
     Active Substance: BENDAMUSTINE HYDROCHLORIDE
     Indication: Follicular lymphoma stage II
     Dosage: 150 MG (CYCLE 1)
     Route: 041
     Dates: start: 202004
  2. BENDAMUSTINE HYDROCHLORIDE [Suspect]
     Active Substance: BENDAMUSTINE HYDROCHLORIDE
     Dosage: UNK (CYCLE 2)
     Route: 041
     Dates: start: 2020
  3. BENDAMUSTINE HYDROCHLORIDE [Suspect]
     Active Substance: BENDAMUSTINE HYDROCHLORIDE
     Dosage: UNK (CYCLE 3)
     Route: 041
     Dates: start: 2020
  4. BENDAMUSTINE HYDROCHLORIDE [Suspect]
     Active Substance: BENDAMUSTINE HYDROCHLORIDE
     Dosage: UNK (CYCLE 4)
     Route: 041
     Dates: start: 2020
  5. BENDAMUSTINE HYDROCHLORIDE [Suspect]
     Active Substance: BENDAMUSTINE HYDROCHLORIDE
     Dosage: UNK (CYCLE 5)
     Route: 041
     Dates: start: 2020
  6. BENDAMUSTINE HYDROCHLORIDE [Suspect]
     Active Substance: BENDAMUSTINE HYDROCHLORIDE
     Dosage: 150 MG (CYCLE 6)
     Route: 041
     Dates: start: 202010
  7. GAZYVA [Concomitant]
     Active Substance: OBINUTUZUMAB
     Indication: Follicular lymphoma stage II
     Dosage: 1000 MG (CYCLE 1)
     Route: 041
     Dates: start: 202004
  8. GAZYVA [Concomitant]
     Active Substance: OBINUTUZUMAB
     Dosage: UNK (CYCLE 2)
     Route: 041
  9. GAZYVA [Concomitant]
     Active Substance: OBINUTUZUMAB
     Dosage: UNK (CYCLE 3)
     Route: 041
  10. GAZYVA [Concomitant]
     Active Substance: OBINUTUZUMAB
     Dosage: UNK (CYCLE 4)
     Route: 041
  11. GAZYVA [Concomitant]
     Active Substance: OBINUTUZUMAB
     Dosage: UNK (CYCLE 5)
     Route: 041
  12. GAZYVA [Concomitant]
     Active Substance: OBINUTUZUMAB
     Dosage: 1000 MG (CYCLE 6)
     Route: 041
     Dates: start: 202010

REACTIONS (1)
  - Diffuse large B-cell lymphoma [Recovered/Resolved]

NARRATIVE: CASE EVENT DATE: 20201101
